FAERS Safety Report 8107371-3 (Version None)
Quarter: 2011Q4

REPORT INFORMATION
  Report Type: 
  Country: None (occurrence: None)
  Receive Date: 20111227
  Receipt Date: 20111122
  Transmission Date: 20120403
  Serious: No
  Sender: FDA-Public Use
  Company Number: PHEH2011US010120

PATIENT
  Age: 43 Year
  Sex: Female

DRUGS (12)
  1. AMITRIPTYLINE HCL [Concomitant]
  2. ZANTAC [Concomitant]
  3. LEVONOXINC [Concomitant]
  4. PROPONIS [Concomitant]
  5. GILENYA [Suspect]
     Dosage: 0.5 MG, QD, ORAL
     Route: 048
     Dates: start: 20111117
  6. MARINOL [Concomitant]
  7. THERAQUIL [Concomitant]
  8. SOMA [Concomitant]
  9. TOPAMAX [Concomitant]
  10. LORATAB (LORATADINE) [Concomitant]
  11. CARBAMAZEPINE [Concomitant]
  12. FLEXERIL [Concomitant]

REACTIONS (3)
  - BACK PAIN [None]
  - CHEST DISCOMFORT [None]
  - FATIGUE [None]
